FAERS Safety Report 24594316 (Version 1)
Quarter: 2024Q4

REPORT INFORMATION
  Report Type: Spontaneous
  Country: US (occurrence: US)
  Receive Date: 20241108
  Receipt Date: 20241108
  Transmission Date: 20250114
  Serious: Yes (Death, Other)
  Sender: AMGEN
  Company Number: US-AMGEN-USASP2024220691

PATIENT
  Age: 60 Year
  Sex: Male

DRUGS (9)
  1. PREDNISONE [Suspect]
     Active Substance: PREDNISONE
     Indication: Prostate cancer metastatic
     Dosage: UNK
     Route: 065
  2. PREDNISONE [Suspect]
     Active Substance: PREDNISONE
     Indication: Hormone-refractory prostate cancer
  3. ENZALUTAMIDE [Concomitant]
     Active Substance: ENZALUTAMIDE
  4. RUCAPARIB [Concomitant]
     Active Substance: RUCAPARIB
  5. LEUPROLIDE [Concomitant]
     Active Substance: LEUPROLIDE
  6. APALUTAMIDE [Concomitant]
     Active Substance: APALUTAMIDE
  7. DOCETAXEL [Concomitant]
     Active Substance: DOCETAXEL
  8. RADIUM RA-223 DICHLORIDE [Concomitant]
     Active Substance: RADIUM RA-223 DICHLORIDE
  9. ABIRATERONE [Concomitant]
     Active Substance: ABIRATERONE\ABIRATERONE ACETATE

REACTIONS (3)
  - Death [Fatal]
  - Prostate cancer metastatic [Unknown]
  - Off label use [Unknown]
